FAERS Safety Report 21278404 (Version 2)
Quarter: 2022Q3

REPORT INFORMATION
  Report Type: Report from Study
  Country: US (occurrence: US)
  Receive Date: 20220831
  Receipt Date: 20220907
  Transmission Date: 20221027
  Serious: Yes (Hospitalization, Other)
  Sender: FDA-Public Use
  Company Number: US-BEIGENE-BGN-2022-004914

PATIENT

DRUGS (10)
  1. BRUKINSA [Suspect]
     Active Substance: ZANUBRUTINIB
     Indication: Waldenstrom^s macroglobulinaemia
     Dosage: 320 MILLIGRAM, QD
     Route: 048
     Dates: start: 202204
  2. BRUKINSA [Suspect]
     Active Substance: ZANUBRUTINIB
     Dosage: 320 MILLIGRAM, QD
     Route: 048
     Dates: start: 202203
  3. BRUKINSA [Suspect]
     Active Substance: ZANUBRUTINIB
     Dosage: 320 MILLIGRAM, QD
     Route: 048
     Dates: start: 20220423
  4. BRUKINSA [Suspect]
     Active Substance: ZANUBRUTINIB
     Dosage: 320 MILLIGRAM, QD
     Route: 048
     Dates: start: 20220423
  5. BRUKINSA [Suspect]
     Active Substance: ZANUBRUTINIB
     Dosage: 320 MILLIGRAM, QD
     Route: 048
     Dates: start: 20220423
  6. CYMBALTA [Concomitant]
     Active Substance: DULOXETINE HYDROCHLORIDE
     Dosage: UNK
  7. GABAPENTIN [Concomitant]
     Active Substance: GABAPENTIN
     Dosage: UNK
  8. MECLIZINE [Concomitant]
     Active Substance: MECLIZINE HYDROCHLORIDE
     Indication: Vertigo
     Dosage: 25 MILLIGRAM, TID
  9. TYLENOL [Concomitant]
     Active Substance: ACETAMINOPHEN
     Indication: Sinusitis
     Dosage: 650 MILLIGRAM, PRN
  10. ALLEGRA [Concomitant]
     Active Substance: FEXOFENADINE HYDROCHLORIDE
     Indication: Hypersensitivity
     Dosage: 180 MILLIGRAM

REACTIONS (20)
  - Neuropathy peripheral [Unknown]
  - Dyspnoea [Unknown]
  - Vertigo [Unknown]
  - Hypotension [Unknown]
  - Blood sodium decreased [Unknown]
  - Poor quality sleep [Unknown]
  - Fatigue [Unknown]
  - Rash [Unknown]
  - COVID-19 [Unknown]
  - Fatigue [Unknown]
  - Bradyphrenia [Unknown]
  - Asthenia [Unknown]
  - Dizziness [Unknown]
  - Sinusitis [Unknown]
  - Cough [Unknown]
  - Eructation [Unknown]
  - Protein total decreased [Unknown]
  - Fall [Unknown]
  - Abdominal discomfort [Unknown]
  - Product dose omission issue [Unknown]

NARRATIVE: CASE EVENT DATE: 20220610
